FAERS Safety Report 11519821 (Version 1)
Quarter: 2015Q3

REPORT INFORMATION
  Report Type: Spontaneous
  Country: US (occurrence: None)
  Receive Date: 20150916
  Receipt Date: 20150916
  Transmission Date: 20151125
  Serious: Yes (Other)
  Sender: FDA-Public Use
  Company Number: US2012000261

PATIENT
  Sex: Male

DRUGS (1)
  1. TUMS SMOOTHIES [Suspect]
     Active Substance: CALCIUM CARBONATE
     Indication: DYSPEPSIA

REACTIONS (1)
  - Dependence [None]
